FAERS Safety Report 22777080 (Version 9)
Quarter: 2023Q4

REPORT INFORMATION
  Report Type: Spontaneous
  Country: US (occurrence: US)
  Receive Date: 20230802
  Receipt Date: 20231228
  Transmission Date: 20240109
  Serious: Yes (Other)
  Sender: FDA-Public Use
  Company Number: US-Blueprint Medicines Corporation-1297

PATIENT
  Age: 65 Year
  Sex: Male

DRUGS (5)
  1. AYVAKIT [Suspect]
     Active Substance: AVAPRITINIB
     Indication: Systemic mastocytosis
     Route: 065
     Dates: start: 20230708
  2. AYVAKIT [Suspect]
     Active Substance: AVAPRITINIB
     Indication: Indolent systemic mastocytosis
     Route: 065
     Dates: start: 20230706
  3. AYVAKIT [Suspect]
     Active Substance: AVAPRITINIB
     Route: 048
     Dates: start: 20230706
  4. AYVAKIT [Suspect]
     Active Substance: AVAPRITINIB
     Route: 065
     Dates: start: 20230706
  5. UNSPECIFIED INGREDIENT [Suspect]
     Active Substance: UNSPECIFIED INGREDIENT
     Indication: Product used for unknown indication
     Route: 065

REACTIONS (35)
  - Neck surgery [Unknown]
  - Mast cell activation syndrome [Unknown]
  - Asthma [Unknown]
  - Blood pressure increased [Recovering/Resolving]
  - Inner ear disorder [Unknown]
  - White blood cell count abnormal [Unknown]
  - Speech disorder [Not Recovered/Not Resolved]
  - Disturbance in attention [Unknown]
  - Brain fog [Not Recovered/Not Resolved]
  - Motor dysfunction [Not Recovered/Not Resolved]
  - Rash macular [Not Recovered/Not Resolved]
  - Ear disorder [Not Recovered/Not Resolved]
  - Unevaluable event [Not Recovered/Not Resolved]
  - Anxiety [Recovering/Resolving]
  - Eye irritation [Unknown]
  - Flushing [Unknown]
  - Abdominal pain [Not Recovered/Not Resolved]
  - Headache [Not Recovered/Not Resolved]
  - Pruritus [Not Recovered/Not Resolved]
  - Gastrointestinal disorder [Unknown]
  - Insomnia [Unknown]
  - Vomiting [Unknown]
  - Musculoskeletal disorder [Unknown]
  - Tremor [Unknown]
  - Feeling abnormal [Unknown]
  - Bone pain [Not Recovered/Not Resolved]
  - Fatigue [Unknown]
  - Nausea [Unknown]
  - Abdominal rigidity [Unknown]
  - Asthenia [Unknown]
  - Gait disturbance [Unknown]
  - Abdominal discomfort [Unknown]
  - Hypoaesthesia [Unknown]
  - Blood pressure abnormal [Unknown]
  - Heart rate increased [Unknown]

NARRATIVE: CASE EVENT DATE: 20230721
